FAERS Safety Report 12810690 (Version 2)
Quarter: 2016Q4

REPORT INFORMATION
  Report Type: Report from Study
  Country: US (occurrence: US)
  Receive Date: 20161005
  Receipt Date: 20161106
  Transmission Date: 20170207
  Serious: Yes (Other)
  Sender: FDA-Public Use
  Company Number: US-AMGEN-USASL2016133284

PATIENT
  Age: 49 Year
  Sex: Male

DRUGS (1)
  1. ENBREL [Suspect]
     Active Substance: ETANERCEPT
     Indication: PSORIATIC ARTHROPATHY
     Dosage: EVERY OTHER THURSDAY AS EVERY TWO WEEKS
     Route: 065
     Dates: start: 20130711

REACTIONS (5)
  - Cellulitis [Recovered/Resolved]
  - Multiple fractures [Unknown]
  - Road traffic accident [Unknown]
  - Off label use [Unknown]
  - Wound [Unknown]

NARRATIVE: CASE EVENT DATE: 20130711
